FAERS Safety Report 7706198-1 (Version None)
Quarter: 2011Q3

REPORT INFORMATION
  Report Type: 
  Country: None (occurrence: None)
  Receive Date: 20110818
  Receipt Date: 20110808
  Transmission Date: 20111222
  Serious: Yes (Other)
  Sender: FDA-Public Use
  Company Number: TPA2011A04725

PATIENT
  Age: 78 Year
  Sex: Female
  Weight: 95.2554 kg

DRUGS (9)
  1. ACTOS [Suspect]
     Indication: TYPE 2 DIABETES MELLITUS
     Dosage: 30 MG, 1 IN 1 D, PER ORAL, FEW YEARS
  2. METOPROLOL TARTRATE [Concomitant]
  3. SPIRONOLACTONE [Concomitant]
  4. ISOSORBIDE (ISOSORBIDE) [Concomitant]
  5. WARFARIN SODIUM [Concomitant]
  6. LOSARTAN POTASSIUM [Concomitant]
  7. GLIPIZIDE [Concomitant]
  8. LEVOTHYROXINE SODIUM [Concomitant]
  9. CRESTOR (ROSOVASTATIN) [Concomitant]

REACTIONS (3)
  - RENAL IMPAIRMENT [None]
  - CORONARY ARTERY OCCLUSION [None]
  - SALPINGO-OOPHORITIS [None]
